FAERS Safety Report 24125450 (Version 1)
Quarter: 2024Q3

REPORT INFORMATION
  Report Type: Spontaneous
  Country: US (occurrence: None)
  Receive Date: 20240722
  Receipt Date: 20240722
  Transmission Date: 20241016
  Serious: Yes (Other)
  Sender: Public
  Company Number: None

PATIENT
  Age: 63 Year
  Sex: Female

DRUGS (1)
  1. AUSTEDO [Suspect]
     Active Substance: DEUTETRABENAZINE
     Indication: Persistent depressive disorder
     Dosage: FREQUENCY : TWICE A DAY;?

REACTIONS (3)
  - Diarrhoea [None]
  - Therapy change [None]
  - Drug ineffective [None]
